FAERS Safety Report 16424644 (Version 1)
Quarter: 2019Q2

REPORT INFORMATION
  Report Type: Spontaneous
  Country: ES (occurrence: ES)
  Receive Date: 20190613
  Receipt Date: 20190613
  Transmission Date: 20190711
  Serious: Yes (Disabling)
  Sender: FDA-Public Use
  Company Number: ES-ACCORD-132833

PATIENT
  Age: 64 Year
  Sex: Male

DRUGS (1)
  1. CISPLATIN. [Suspect]
     Active Substance: CISPLATIN
     Indication: COLON CANCER
     Route: 042
     Dates: start: 2009, end: 2012

REACTIONS (3)
  - Portal hypertension [Not Recovered/Not Resolved]
  - Off label use [Unknown]
  - Hepatic cirrhosis [Not Recovered/Not Resolved]

NARRATIVE: CASE EVENT DATE: 2018
